FAERS Safety Report 9552910 (Version 1)
Quarter: 2013Q3

REPORT INFORMATION
  Report Type: Spontaneous
  Country: US (occurrence: US)
  Receive Date: 20130925
  Receipt Date: 20130925
  Transmission Date: 20140515
  Serious: No
  Sender: FDA-Public Use
  Company Number: US-PURDUE-USA-2012-0090911

PATIENT
  Sex: Male

DRUGS (4)
  1. TRAMADOL (SIMILAR TO NDA 21-745) [Suspect]
     Indication: BACK PAIN
     Dosage: 1 TABLET, DAILY
     Route: 048
  2. TRAMADOL (SIMILAR TO NDA 21-745) [Suspect]
     Indication: ARTHRALGIA
  3. VICODIN [Suspect]
     Indication: BACK PAIN
     Dosage: 1 TABLET, DAILY
     Route: 048
  4. VICODIN [Suspect]
     Indication: ARTHRALGIA

REACTIONS (3)
  - Drug withdrawal syndrome [Unknown]
  - Flatulence [Recovered/Resolved]
  - Abdominal pain [Recovered/Resolved]
